FAERS Safety Report 6776291-9 (Version None)
Quarter: 2010Q2

REPORT INFORMATION
  Report Type: 
  Country: None (occurrence: None)
  Receive Date: 20100617
  Receipt Date: 20100607
  Transmission Date: 20101027
  Serious: Yes (Other)
  Sender: FDA-Public Use
  Company Number: JP-ALLERGAN-1007463US

PATIENT
  Age: 6 Year
  Sex: Male

DRUGS (5)
  1. ALESION SYRUP [Suspect]
     Indication: RHINITIS ALLERGIC
     Dosage: 1 G, BID
     Route: 048
     Dates: start: 20100318, end: 20100506
  2. ALESION SYRUP [Suspect]
     Indication: INFLAMMATION
  3. FLUMETHOLON [Suspect]
     Dosage: UNK, BID
     Route: 031
     Dates: start: 20100318
  4. FLUNASE [Suspect]
     Indication: RHINITIS ALLERGIC
     Dosage: UNK, BID
     Route: 045
     Dates: start: 20100318
  5. PEMILASTON [Suspect]
     Indication: RHINITIS ALLERGIC
     Dosage: UNK
     Route: 031
     Dates: start: 20100318

REACTIONS (1)
  - HEPATIC FUNCTION ABNORMAL [None]
